FAERS Safety Report 8390741-6 (Version None)
Quarter: 2012Q2

REPORT INFORMATION
  Report Type: 
  Country: None (occurrence: None)
  Receive Date: 20120515
  Receipt Date: 20120509
  Transmission Date: 20120825
  Serious: Yes (Hospitalization, Disabling)
  Sender: FDA-Public Use
  Company Number: 2011SP051267

PATIENT
  Age: 26 Year
  Sex: Female
  Weight: 113.3993 kg

DRUGS (2)
  1. NUVARING [Suspect]
     Indication: CONTRACEPTION
     Dosage: QM;VAG
     Route: 067
     Dates: start: 20070101, end: 20091101
  2. BENADRYL [Suspect]
     Indication: PRODUCT USED FOR UNKNOWN INDICATION

REACTIONS (8)
  - DEEP VEIN THROMBOSIS [None]
  - DYSPLASIA [None]
  - PAIN [None]
  - ERYTHEMA [None]
  - VENOUS INSUFFICIENCY [None]
  - VARICOSE VEIN [None]
  - ABDOMINAL PAIN UPPER [None]
  - SWELLING [None]
